FAERS Safety Report 14488661 (Version 4)
Quarter: 2018Q2

REPORT INFORMATION
  Report Type: Spontaneous
  Country: US (occurrence: US)
  Receive Date: 20180205
  Receipt Date: 20180615
  Transmission Date: 20180711
  Serious: No
  Sender: FDA-Public Use
  Company Number: US-ACTELION-A-NJ2018-166339

PATIENT
  Age: 74 Year
  Sex: Female

DRUGS (3)
  1. UPTRAVI [Suspect]
     Active Substance: SELEXIPAG
     Indication: PULMONARY ARTERIAL HYPERTENSION
     Dosage: 1600 MCG, BID
     Route: 048
     Dates: start: 20160628
  2. OPSUMIT [Suspect]
     Active Substance: MACITENTAN
     Indication: PULMONARY ARTERIAL HYPERTENSION
     Dosage: 10 MG, QD
     Route: 048
     Dates: start: 20150620
  3. SILDENAFIL. [Concomitant]
     Active Substance: SILDENAFIL

REACTIONS (8)
  - Urticaria [Unknown]
  - Rash [Unknown]
  - Palpitations [Unknown]
  - Diarrhoea [Unknown]
  - Memory impairment [Unknown]
  - Night sweats [Unknown]
  - Pruritus generalised [Unknown]
  - Flushing [Unknown]

NARRATIVE: CASE EVENT DATE: 201801
